FAERS Safety Report 23839664 (Version 1)
Quarter: 2024Q2

REPORT INFORMATION
  Report Type: Spontaneous
  Country: US (occurrence: US)
  Receive Date: 20240510
  Receipt Date: 20240510
  Transmission Date: 20240715
  Serious: No
  Sender: FDA-Public Use
  Company Number: US-AMGEN-USASP2024090765

PATIENT

DRUGS (7)
  1. REPATHA [Suspect]
     Active Substance: EVOLOCUMAB
     Indication: Product used for unknown indication
     Dosage: UNK (140 MILLIGRAM, 1 DEVICE)
     Route: 065
  2. REPATHA [Suspect]
     Active Substance: EVOLOCUMAB
     Dosage: UNK (140 MILLIGRAM, 4 DEVICE)
     Route: 065
  3. REPATHA [Suspect]
     Active Substance: EVOLOCUMAB
     Dosage: UNK (140 MILLIGRAM,)
     Route: 065
  4. AIMOVIG [Suspect]
     Active Substance: ERENUMAB-AOOE
     Indication: Product used for unknown indication
     Dosage: UNK (70 MILLIGRAM)
     Route: 065
  5. AIMOVIG [Suspect]
     Active Substance: ERENUMAB-AOOE
     Dosage: UNK (70 MILLIGRAM)
     Route: 065
  6. AIMOVIG [Suspect]
     Active Substance: ERENUMAB-AOOE
     Dosage: UNK (140 MILLIGRAM)
     Route: 065
  7. AIMOVIG [Suspect]
     Active Substance: ERENUMAB-AOOE
     Dosage: UNK (140 MILLIGRAM)
     Route: 065

REACTIONS (2)
  - Intercepted product administration error [Unknown]
  - Product storage error [Unknown]

NARRATIVE: CASE EVENT DATE: 20240506
